FAERS Safety Report 4369187-3 (Version None)
Quarter: 2004Q2

REPORT INFORMATION
  Report Type: 
  Country: None (occurrence: None)
  Receive Date: 20040525
  Receipt Date: 20040506
  Transmission Date: 20050107
  Serious: Yes (Hospitalization)
  Sender: FDA-Public Use
  Company Number: MEDI-0001490

PATIENT
  Age: 20 Month
  Sex: Female
  Weight: 9.6 kg

DRUGS (5)
  1. SYNAGIS [Suspect]
     Indication: ANTIVIRAL PROPHYLAXIS
     Dosage: SEE IMAGE
     Route: 030
     Dates: start: 20031210, end: 20031210
  2. SYNAGIS [Suspect]
     Indication: ANTIVIRAL PROPHYLAXIS
     Dosage: SEE IMAGE
     Route: 030
     Dates: start: 20040226
  3. SYNAGIS [Suspect]
     Indication: ANTIVIRAL PROPHYLAXIS
     Dosage: SEE IMAGE
     Route: 030
     Dates: start: 20040329
  4. GENTAMICIN [Suspect]
     Indication: RENAL TUBULAR NECROSIS
  5. CORTICOSTEROIDS [Suspect]
     Indication: CUSHINGOID

REACTIONS (21)
  - ACUTE RESPIRATORY DISTRESS SYNDROME [None]
  - CATHETER RELATED INFECTION [None]
  - CUSHINGOID [None]
  - HAEMODIALYSIS [None]
  - IMMUNOLOGY TEST ABNORMAL [None]
  - INFLUENZA [None]
  - INTERCOSTAL RETRACTION [None]
  - METABOLIC ACIDOSIS [None]
  - NEONATAL RESPIRATORY DISTRESS SYNDROME [None]
  - NEPHRITIS [None]
  - NEPHROPATHY TOXIC [None]
  - POOR VENOUS ACCESS [None]
  - PULMONARY OEDEMA [None]
  - PYREXIA [None]
  - RENAL FAILURE [None]
  - RENAL TUBULAR NECROSIS [None]
  - RESPIRATORY DISTRESS [None]
  - RESPIRATORY SYNCYTIAL VIRUS INFECTION [None]
  - SEPSIS [None]
  - STAPHYLOCOCCAL INFECTION [None]
  - WHEEZING [None]
